FAERS Safety Report 8165327-9 (Version None)
Quarter: 2012Q1

REPORT INFORMATION
  Report Type: 
  Country: None (occurrence: None)
  Receive Date: 20120222
  Receipt Date: 20120222
  Transmission Date: 20120608
  Serious: Yes (Hospitalization)
  Sender: FDA-Public Use
  Company Number: None

PATIENT
  Age: 35 Year
  Sex: Male

DRUGS (1)
  1. CLOZAPINE [Suspect]
     Indication: AUTISM
     Dosage: 50MG BID PO  OUTSIDE HOSPITAL
     Route: 048
     Dates: start: 20111028

REACTIONS (1)
  - MYOCARDITIS [None]
